FAERS Safety Report 18951818 (Version 5)
Quarter: 2023Q4

REPORT INFORMATION
  Report Type: Report from Study
  Country: FR (occurrence: None)
  Receive Date: 20210301
  Receipt Date: 20231122
  Transmission Date: 20240110
  Serious: Yes (Hospitalization, Other)
  Sender: FDA-Public Use
  Company Number: FR-ROCHE-2771816

PATIENT
  Age: 71 Year
  Sex: Female

DRUGS (9)
  1. ATEZOLIZUMAB [Suspect]
     Active Substance: ATEZOLIZUMAB
     Indication: Ovarian cancer
     Dosage: ON 04/SEP/2019, HE RECEIVED MOST RECENT DOSE OF ATEZOLIZUMAB.
     Route: 042
     Dates: start: 20190226
  2. BEVACIZUMAB [Suspect]
     Active Substance: BEVACIZUMAB
     Indication: Ovarian cancer
     Dosage: ON 04/SEP/2019, HE RECEIVED MOST RECENT DOSE OF BEVACIIZUMAB.
     Route: 042
     Dates: start: 20190226, end: 20190926
  3. CARBOPLATIN [Concomitant]
     Active Substance: CARBOPLATIN
     Indication: Ovarian cancer
     Dosage: ON 24-JUL-2019 THE PATIENT RECEIVED LAST DOSE OF CARBOPLATIN BEFORE THE EVENT.
     Route: 042
     Dates: start: 20190226, end: 20190725
  4. DOXORUBICIN [Concomitant]
     Active Substance: DOXORUBICIN
     Indication: Ovarian cancer
     Dosage: ON 24-JUL-2019 SHE RECEIVED LAST DOSE OF PEGYLATED LIPOSOMAL DOXORUBICIN (PLD) BEFORE THE EVENT.
     Route: 042
     Dates: start: 20190226, end: 20190725
  5. GEMCITABINE [Concomitant]
     Active Substance: GEMCITABINE
     Indication: Ovarian cancer
     Route: 042
  6. PACLITAXEL [Concomitant]
     Active Substance: PACLITAXEL
     Indication: Ovarian cancer
     Route: 042
  7. AMLODIPINE BESYLATE [Concomitant]
     Active Substance: AMLODIPINE BESYLATE
  8. DOLIPRANE [Concomitant]
     Active Substance: ACETAMINOPHEN
  9. SPASFON [Concomitant]

REACTIONS (3)
  - Acute kidney injury [Not Recovered/Not Resolved]
  - Thrombotic microangiopathy [Unknown]
  - Biopsy kidney [Recovered/Resolved]

NARRATIVE: CASE EVENT DATE: 20191017
